FAERS Safety Report 24292915 (Version 1)
Quarter: 2024Q3

REPORT INFORMATION
  Report Type: Spontaneous
  Country: US (occurrence: None)
  Receive Date: 20240906
  Receipt Date: 20240906
  Transmission Date: 20241016
  Serious: No
  Sender: DOMPE FARMACEUTICI
  Company Number: US-FARMAPROD-202311-3255

PATIENT
  Age: 66 Year
  Sex: Female

DRUGS (12)
  1. OXERVATE [Suspect]
     Active Substance: CENEGERMIN-BKBJ
     Indication: Neurotrophic keratopathy
     Route: 047
     Dates: start: 20231023
  2. TEARS LUBRICANT [Concomitant]
     Active Substance: GLYCERIN\HYPROMELLOSES\POLYETHYLENE GLYCOL 400
  3. VITAMIN B12 [Concomitant]
     Active Substance: CYANOCOBALAMIN
     Dosage: RAPID DISSOLVING.
  4. MULTIVITAMIN GUMMIES [Concomitant]
  5. CALCIUM [Concomitant]
     Active Substance: CALCIUM
     Dosage: 500(1250)
  6. PROLIA [Concomitant]
     Active Substance: DENOSUMAB
  7. GABAPENTIN [Concomitant]
     Active Substance: GABAPENTIN
  8. TEMAZEPAM [Concomitant]
     Active Substance: TEMAZEPAM
  9. MIDODRINE HYDROCHLORIDE [Concomitant]
     Active Substance: MIDODRINE HYDROCHLORIDE
  10. PANTOPRAZOLE SODIUM [Concomitant]
     Active Substance: PANTOPRAZOLE SODIUM
  11. HYDROXYCHLOROQUINE SULFATE [Concomitant]
     Active Substance: HYDROXYCHLOROQUINE SULFATE
  12. AUTOLOGOUS HUMAN CORNEAL EPITHELIAL CELLS [Concomitant]

REACTIONS (1)
  - Eye pain [Not Recovered/Not Resolved]

NARRATIVE: CASE EVENT DATE: 20231001
